FAERS Safety Report 14375359 (Version 1)
Quarter: 2018Q1

REPORT INFORMATION
  Report Type: Spontaneous
  Country: US (occurrence: US)
  Receive Date: 20180111
  Receipt Date: 20180111
  Transmission Date: 20180509
  Serious: Yes (Hospitalization, Other)
  Sender: FDA-Public Use
  Company Number: US-GLAXOSMITHKLINE-US2018003340

PATIENT
  Sex: Female

DRUGS (21)
  1. ASCORBIC ACID. [Concomitant]
     Active Substance: ASCORBIC ACID
  2. PROAIR HFA [Concomitant]
     Active Substance: ALBUTEROL SULFATE
  3. ASPIRIN. [Concomitant]
     Active Substance: ASPIRIN
  4. LANTUS [Concomitant]
     Active Substance: INSULIN GLARGINE
  5. MAGNESIUM [Concomitant]
     Active Substance: MAGNESIUM
  6. PROTONIX [Concomitant]
     Active Substance: PANTOPRAZOLE SODIUM
  7. PROZAC [Concomitant]
     Active Substance: FLUOXETINE HYDROCHLORIDE
  8. ATORVASTATIN [Concomitant]
     Active Substance: ATORVASTATIN
  9. NOVOLOG [Concomitant]
     Active Substance: INSULIN ASPART
  10. VITAMIN D3 [Concomitant]
     Active Substance: CHOLECALCIFEROL
  11. CALCIUM [Concomitant]
     Active Substance: CALCIUM
  12. CINNAMON BARK [Concomitant]
  13. FOLIC ACID. [Concomitant]
     Active Substance: FOLIC ACID
  14. GABAPENTIN. [Concomitant]
     Active Substance: GABAPENTIN
  15. METOPROLOL. [Concomitant]
     Active Substance: METOPROLOL
  16. ZETIA [Concomitant]
     Active Substance: EZETIMIBE
  17. LOSARTAN. [Concomitant]
     Active Substance: LOSARTAN
  18. MELATONIN [Concomitant]
     Active Substance: MELATONIN
  19. METFORMIN [Concomitant]
     Active Substance: METFORMIN HYDROCHLORIDE
  20. TANZEUM [Suspect]
     Active Substance: ALBIGLUTIDE
     Indication: TYPE 2 DIABETES MELLITUS
     Dosage: 50 MG, WE
     Route: 058
     Dates: start: 201706
  21. LASIX [Concomitant]
     Active Substance: FUROSEMIDE

REACTIONS (3)
  - Heart valve replacement [Unknown]
  - Diverticulitis [Unknown]
  - Abdominal pain lower [Recovering/Resolving]
